FAERS Safety Report 10071348 (Version 1)
Quarter: 2014Q2

REPORT INFORMATION
  Report Type: Spontaneous
  Country: US (occurrence: US)
  Receive Date: 20140410
  Receipt Date: 20140410
  Transmission Date: 20141212
  Serious: No
  Sender: FDA-Public Use
  Company Number: US-ASTRAZENECA-2014SE14455

PATIENT
  Age: 54 Year
  Sex: Female
  Weight: 63 kg

DRUGS (6)
  1. CAPRELSA [Suspect]
     Indication: MEDULLARY THYROID CANCER
     Route: 048
  2. CAPRELSA [Suspect]
     Indication: MEDULLARY THYROID CANCER
     Route: 048
     Dates: start: 2012
  3. TRAZADONE [Concomitant]
     Indication: SLEEP DISORDER
     Route: 048
     Dates: start: 2012
  4. DIAZAPAM [Concomitant]
     Indication: BIPOLAR I DISORDER
     Route: 048
  5. ROPINIROLE [Concomitant]
     Indication: HYPOAESTHESIA
     Route: 048
     Dates: start: 201312
  6. ROPINIROLE [Concomitant]
     Indication: RESTLESS LEGS SYNDROME
     Route: 048
     Dates: start: 201312

REACTIONS (7)
  - Feeling abnormal [Unknown]
  - Renal disorder [Unknown]
  - Musculoskeletal discomfort [Not Recovered/Not Resolved]
  - Bladder fibrosis [Unknown]
  - Pain [Unknown]
  - Diarrhoea [Not Recovered/Not Resolved]
  - Hypertension [Unknown]
